FAERS Safety Report 5407759-5 (Version None)
Quarter: 2007Q3

REPORT INFORMATION
  Report Type: 
  Country: None (occurrence: None)
  Receive Date: 20070807
  Receipt Date: 20070216
  Transmission Date: 20080115
  Serious: No
  Sender: FDA-Public Use
  Company Number: BR-SHR-BR-2007-005688

PATIENT
  Age: 29 Year
  Sex: Female

DRUGS (2)
  1. BETAFERON [Suspect]
     Indication: MULTIPLE SCLEROSIS
     Dosage: UNK MIU, EVERY 2D
     Route: 058
     Dates: start: 20061001
  2. TYLENOL (CAPLET) [Concomitant]
     Indication: HEADACHE
     Dosage: 1 TAB(S), EVERY 2D
     Route: 048
     Dates: start: 20070101

REACTIONS (2)
  - CHILLS [None]
  - MYALGIA [None]
